FAERS Safety Report 19238639 (Version 1)
Quarter: 2021Q2

REPORT INFORMATION
  Report Type: Spontaneous
  Country: CA (occurrence: CA)
  Receive Date: 20210510
  Receipt Date: 20210510
  Transmission Date: 20210717
  Serious: Yes (Other)
  Sender: FDA-Public Use
  Company Number: CA-SAMSUNG BIOEPIS-SB-2021-10882

PATIENT
  Age: 73 Year
  Sex: Female
  Weight: 110 kg

DRUGS (1)
  1. INFLIXIMAB [Suspect]
     Active Substance: INFLIXIMAB
     Indication: RHEUMATOID ARTHRITIS
     Route: 042

REACTIONS (7)
  - Intentional product use issue [Unknown]
  - Dyspnoea [Unknown]
  - Hypothermia [Unknown]
  - Blood pressure increased [Unknown]
  - Weight decreased [Unknown]
  - Product use issue [Unknown]
  - Off label use [Unknown]
